FAERS Safety Report 11501412 (Version 2)
Quarter: 2015Q4

REPORT INFORMATION
  Report Type: Spontaneous
  Country: US (occurrence: US)
  Receive Date: 20150914
  Receipt Date: 20151030
  Transmission Date: 20160304
  Serious: Yes (Hospitalization, Congenital Anomaly, Other)
  Sender: FDA-Public Use
  Company Number: US-PFIZER INC-2015303439

PATIENT
  Sex: Male
  Weight: 3 kg

DRUGS (1)
  1. ZOLOFT [Suspect]
     Active Substance: SERTRALINE HYDROCHLORIDE
     Indication: DEPRESSION
     Dosage: 25 MG, DAILY (50 MG HALF TABLET)
     Route: 064
     Dates: start: 20000103

REACTIONS (3)
  - Maternal exposure during pregnancy [Unknown]
  - Spina bifida occulta [Unknown]
  - Tethered cord syndrome [Unknown]

NARRATIVE: CASE EVENT DATE: 20000917
